FAERS Safety Report 9633870 (Version 3)
Quarter: 2013Q4

REPORT INFORMATION
  Report Type: Report from Study
  Country: DE (occurrence: DE)
  Receive Date: 20131021
  Receipt Date: 20131031
  Transmission Date: 20140711
  Serious: Yes (Hospitalization, Other)
  Sender: FDA-Public Use
  Company Number: DE-ROCHE-1233513

PATIENT
  Age: 36 Year
  Sex: Female
  Weight: 55 kg

DRUGS (7)
  1. TRASTUZUMAB EMTANSINE [Suspect]
     Indication: BREAST CANCER
     Route: 042
     Dates: start: 20130522
  2. LOPERAMIDE [Concomitant]
     Route: 048
     Dates: start: 20130530, end: 20130603
  3. ZOFRAN [Concomitant]
     Route: 042
     Dates: start: 20130530, end: 20130603
  4. METRONIDAZOLE [Concomitant]
     Route: 048
     Dates: start: 20130502, end: 20130603
  5. DEXAMETHASONE [Concomitant]
     Route: 048
  6. KEPPRA [Concomitant]
     Route: 048
  7. OXYCODONE [Concomitant]
     Route: 048

REACTIONS (5)
  - Diarrhoea [Recovered/Resolved]
  - General physical health deterioration [Recovered/Resolved]
  - Nausea [Not Recovered/Not Resolved]
  - Vomiting [Not Recovered/Not Resolved]
  - Disease progression [Unknown]
